FAERS Safety Report 9071034 (Version 1)
Quarter: 2013Q1

REPORT INFORMATION
  Report Type: Spontaneous
  Country: US (occurrence: US)
  Receive Date: 20130206
  Receipt Date: 20130206
  Transmission Date: 20140127
  Serious: No
  Sender: FDA-Public Use
  Company Number: US-ALLERGAN-1208167US

PATIENT
  Sex: Female

DRUGS (7)
  1. RESTASIS? [Suspect]
     Indication: DRY EYE
     Dosage: 2 GTT, BID
     Route: 047
     Dates: start: 201205, end: 201206
  2. LISINOPRIL [Concomitant]
     Indication: HYPERTENSION
     Dosage: 10 MG, UNK
     Route: 048
     Dates: start: 201201
  3. NORTRIPTYLINE [Concomitant]
     Indication: ANXIETY
     Dosage: UNK
     Route: 048
     Dates: start: 2011
  4. FISH OIL [Concomitant]
     Indication: SUPPLEMENTATION THERAPY
     Dosage: UNK
     Route: 048
  5. COQ-10 [Concomitant]
     Indication: SUPPLEMENTATION THERAPY
     Dosage: UNK
     Route: 048
  6. SPIRONOLACTONE [Concomitant]
     Indication: LOCAL SWELLING
     Dosage: UNK
     Route: 048
  7. SPIRONOLACTONE [Concomitant]
     Indication: TINNITUS

REACTIONS (6)
  - Macular fibrosis [Unknown]
  - Eye swelling [Recovering/Resolving]
  - Eye discharge [Recovering/Resolving]
  - Eye irritation [Recovering/Resolving]
  - Eye pruritus [Recovering/Resolving]
  - Ocular hyperaemia [Recovering/Resolving]
